FAERS Safety Report 6548108-9 (Version None)
Quarter: 2010Q1

REPORT INFORMATION
  Report Type: 
  Country: None (occurrence: None)
  Receive Date: 20100124
  Receipt Date: 20090107
  Transmission Date: 20100710
  Serious: No
  Sender: FDA-Public Use
  Company Number: US-ALLERGAN-0900060US

PATIENT
  Age: 86 Year
  Sex: Female

DRUGS (7)
  1. RESTASIS [Suspect]
     Indication: DRY EYE
     Dosage: 1 GTT, BID
     Route: 047
     Dates: start: 20081124
  2. FOSAMAX [Concomitant]
     Indication: OSTEOPOROSIS
  3. LIPITOR [Concomitant]
     Indication: BLOOD CHOLESTEROL
  4. ASPIRIN [Concomitant]
  5. MULTI-VITAMINS [Concomitant]
  6. VITAMIN E [Concomitant]
  7. MULTIVITAMIN [Concomitant]

REACTIONS (1)
  - PERIORBITAL HAEMATOMA [None]
